FAERS Safety Report 8449734 (Version 2)
Quarter: 2012Q4

REPORT INFORMATION
  Report Type: 
  Country: US (occurrence: None)
  Receive Date: 20120301
  Receipt Date: 20120828
  Transmission Date: 20130627
  Serious: Yes (Life-Threatening, Hospitalization)
  Sender: FDA-Public Use
  Company Number: AUR-APL-2012-01062

PATIENT
  Age: 48 Year
  Sex: Female
  Weight: 98 kg

DRUGS (7)
  1. PIPERACILLIN AND TAZOBACTAM [Suspect]
     Indication: SEPSIS
     Dosage: 3 DOSAGE FORMS (1 DOSAGE FORMS,3 IN 1 D),INTRAVENOUS
     Route: 042
     Dates: start: 20111106, end: 20111124
  2. CODEINE SULFATE [Concomitant]
  3. CYCLIZINE (CYCLIZINE) [Concomitant]
  4. DALTEPARIN SODIUM [Concomitant]
  5. FERROUS SULFATE [Concomitant]
  6. FOLIC ACID [Concomitant]
  7. ACETAMINOPHEN [Concomitant]

REACTIONS (2)
  - DRUG WITHDRAWAL SYNDROME [None]
  - HEPARIN-INDUCED THROMBOCYTOPENIA [None]
